FAERS Safety Report 9644741 (Version 1)
Quarter: 2013Q4

REPORT INFORMATION
  Report Type: Spontaneous
  Country: US (occurrence: US)
  Receive Date: 20131025
  Receipt Date: 20131025
  Transmission Date: 20140711
  Serious: No
  Sender: FDA-Public Use
  Company Number: US-PFIZER INC-2013300466

PATIENT
  Age: 18 Year
  Sex: Male
  Weight: 90.7 kg

DRUGS (5)
  1. ADVIL [Suspect]
     Indication: PAIN IN EXTREMITY
     Dosage: 200 MG, AS NEEDED
  2. ADVIL PM [Suspect]
     Indication: PAIN IN EXTREMITY
     Dosage: 400 MG (TWO CAPSULES,200MG EACH), DAILY AT NIGHT
  3. IBUPROFEN [Suspect]
     Indication: PAIN IN EXTREMITY
     Dosage: UNK
  4. ALEVE [Suspect]
     Indication: PAIN IN EXTREMITY
     Dosage: 220 MG, EVERY 12 HRS
  5. NAPROXEN SODIUM [Suspect]
     Indication: PAIN IN EXTREMITY
     Dosage: 440 MG (TWO CAPSULES, 220MG EACH), EVERY 12 HOURS

REACTIONS (1)
  - Drug screen positive [Unknown]
